FAERS Safety Report 15767895 (Version 2)
Quarter: 2019Q1

REPORT INFORMATION
  Report Type: Report from Study
  Country: FR (occurrence: FR)
  Receive Date: 20181227
  Receipt Date: 20190104
  Transmission Date: 20190417
  Serious: Yes (Hospitalization, Other)
  Sender: FDA-Public Use
  Company Number: FR-BRISTOL-MYERS SQUIBB COMPANY-BMS-2018-117156

PATIENT
  Age: 13 Year
  Sex: Female
  Weight: 31 kg

DRUGS (3)
  1. IPILIMUMAB [Suspect]
     Active Substance: IPILIMUMAB
     Indication: MEDULLOBLASTOMA
     Dosage: 1 MG/KG, QD
     Route: 042
     Dates: start: 20180607
  2. NIVOLUMAB [Suspect]
     Active Substance: NIVOLUMAB
     Indication: MEDULLOBLASTOMA
     Dosage: 3 MG/ML, QD
     Route: 042
     Dates: start: 20180607
  3. EUTHYROX [Concomitant]
     Active Substance: LEVOTHYROXINE SODIUM
     Indication: PRODUCT USED FOR UNKNOWN INDICATION
     Dosage: 50 ?G, UNK
     Route: 065
     Dates: start: 20160201

REACTIONS (2)
  - Infection [Recovered/Resolved]
  - Immune-mediated adverse reaction [Recovered/Resolved]

NARRATIVE: CASE EVENT DATE: 20181212
